FAERS Safety Report 19252587 (Version 2)
Quarter: 2021Q2

REPORT INFORMATION
  Report Type: Spontaneous
  Country: US (occurrence: US)
  Receive Date: 20210512
  Receipt Date: 20210514
  Transmission Date: 20210717
  Serious: Yes (Other)
  Sender: FDA-Public Use
  Company Number: US-BAXTER-2021BAX010316

PATIENT
  Age: 66 Year
  Sex: Female

DRUGS (3)
  1. DOXIL [Suspect]
     Active Substance: DOXORUBICIN HYDROCHLORIDE
     Indication: BREAST CANCER METASTATIC
     Dosage: STRENGTH: 20MG/10ML, 2 VIALS; 1 DOXIL 50MG/25 ML VIALS + 2 DOXIL 20MG/10ML VIALS + DEXTROSE 5% 250ML
     Route: 042
     Dates: start: 20210427, end: 20210427
  2. 5% DEXTROSE INJECTION, USP [Suspect]
     Active Substance: DEXTROSE
     Indication: MEDICATION DILUTION
     Dosage: 1 DOXIL 50MG/25 ML VIALS + 2 DOXIL 20MG/10ML VIALS + DEXTROSE 5% 250ML
     Route: 042
     Dates: start: 20210427, end: 20210427
  3. DOXIL [Suspect]
     Active Substance: DOXORUBICIN HYDROCHLORIDE
     Indication: BREAST CANCER METASTATIC
     Dosage: STRENGTH: 50MG/25ML; 1 DOXIL 50MG/25ML VIAL+ 2 DOXIL 20MG/10ML VIALS+ DEXTROSE 5% 250ML
     Route: 042
     Dates: start: 20210427, end: 20210427

REACTIONS (3)
  - Dyspnoea [Recovered/Resolved]
  - Chest discomfort [Recovered/Resolved]
  - Headache [Recovered/Resolved]

NARRATIVE: CASE EVENT DATE: 20210427
